FAERS Safety Report 13915580 (Version 1)
Quarter: 2017Q3

REPORT INFORMATION
  Report Type: Spontaneous
  Country: US (occurrence: US)
  Receive Date: 20170828
  Receipt Date: 20170828
  Transmission Date: 20171127
  Serious: Yes (Other)
  Sender: FDA-Public Use
  Company Number: None

PATIENT
  Age: 52 Week
  Sex: Female
  Weight: 83.25 kg

DRUGS (2)
  1. CONTRAVE [Suspect]
     Active Substance: BUPROPION HYDROCHLORIDE\NALTREXONE HYDROCHLORIDE
     Indication: WEIGHT CONTROL
     Dosage: ?          QUANTITY:2 TABLET(S);?TWICE A DAY ORAL
     Route: 048
     Dates: start: 20170807, end: 20170810
  2. CLONODINE [Concomitant]

REACTIONS (6)
  - Paranoia [None]
  - Sensory disturbance [None]
  - Thinking abnormal [None]
  - Fear [None]
  - Vision blurred [None]
  - Anxiety [None]

NARRATIVE: CASE EVENT DATE: 20170809
